FAERS Safety Report 7751977-8 (Version None)
Quarter: 2011Q3

REPORT INFORMATION
  Report Type: 
  Country: None (occurrence: None)
  Receive Date: 20110915
  Receipt Date: 20110907
  Transmission Date: 20111222
  Serious: Yes (Other)
  Sender: FDA-Public Use
  Company Number: US-SANOFI-AVENTIS-2011SA059074

PATIENT
  Age: 57 Year
  Sex: Male

DRUGS (4)
  1. NIASPAN [Suspect]
     Route: 065
     Dates: start: 20110401
  2. NEBIVOLOL HCL [Suspect]
     Route: 065
  3. SIMVASTATIN [Concomitant]
  4. PLAVIX [Suspect]
     Route: 065

REACTIONS (6)
  - CORONARY ARTERY OCCLUSION [None]
  - FLUSHING [None]
  - EPISTAXIS [None]
  - SCAB [None]
  - SOMNOLENCE [None]
  - PRURITUS [None]
